FAERS Safety Report 8411296-3 (Version None)
Quarter: 2012Q2

REPORT INFORMATION
  Report Type: 
  Country: None (occurrence: None)
  Receive Date: 20120605
  Receipt Date: 20120601
  Transmission Date: 20120825
  Serious: Yes (Other)
  Sender: FDA-Public Use
  Company Number: US-PFIZER INC-2012132674

PATIENT
  Sex: Female
  Weight: 86.621 kg

DRUGS (1)
  1. EMBEDA [Suspect]
     Indication: PAIN
     Dosage: 50/2 MG, 2X/DAY
     Route: 048
     Dates: start: 20110301, end: 20110302

REACTIONS (5)
  - FALL [None]
  - HEAD INJURY [None]
  - FATIGUE [None]
  - DRUG INEFFECTIVE [None]
  - CONCUSSION [None]
